FAERS Safety Report 18401505 (Version 2)
Quarter: 2020Q4

REPORT INFORMATION
  Report Type: Spontaneous
  Country: US (occurrence: US)
  Receive Date: 20201019
  Receipt Date: 20201103
  Transmission Date: 20210114
  Serious: Yes (Death, Other)
  Sender: FDA-Public Use
  Company Number: US-TEVA-2020-US-1838502

PATIENT
  Age: 41 Year
  Sex: Male

DRUGS (4)
  1. FENTANYL. [Suspect]
     Active Substance: FENTANYL
     Route: 065
  2. HEROIN [Suspect]
     Active Substance: DIAMORPHINE
     Route: 065
  3. ACETAMINOPHEN W/HYDROCODONE [Suspect]
     Active Substance: ACETAMINOPHEN\HYDROCODONE
     Route: 065
  4. OXYCONTIN [Suspect]
     Active Substance: OXYCODONE HYDROCHLORIDE
     Route: 065

REACTIONS (7)
  - Loss of employment [Unknown]
  - Withdrawal syndrome [Unknown]
  - Dependence [Not Recovered/Not Resolved]
  - Substance use disorder [Not Recovered/Not Resolved]
  - Overdose [Fatal]
  - Drug abuse [Unknown]
  - Pain [Not Recovered/Not Resolved]

NARRATIVE: CASE EVENT DATE: 20120307
